FAERS Safety Report 20207775 (Version 2)
Quarter: 2021Q4

REPORT INFORMATION
  Report Type: Spontaneous
  Country: US (occurrence: US)
  Receive Date: 20211220
  Receipt Date: 20211228
  Transmission Date: 20220303
  Serious: Yes (Hospitalization)
  Sender: FDA-Public Use
  Company Number: US-PFIZER INC-202101797491

PATIENT
  Age: 67 Year
  Sex: Male

DRUGS (1)
  1. METHYLPREDNISOLONE SODIUM SUCCINATE [Suspect]
     Active Substance: METHYLPREDNISOLONE SODIUM SUCCINATE
     Dosage: UNK
     Route: 042

REACTIONS (7)
  - Nausea [Unknown]
  - Dysphonia [Unknown]
  - Weight decreased [Unknown]
  - Feeding disorder [Unknown]
  - Taste disorder [Unknown]
  - Dysgeusia [Unknown]
  - Decreased appetite [Unknown]
